FAERS Safety Report 8961638 (Version 3)
Quarter: 2013Q1

REPORT INFORMATION
  Report Type: Report from Study
  Country: US (occurrence: US)
  Receive Date: 20121212
  Receipt Date: 20130213
  Transmission Date: 20140127
  Serious: No
  Sender: FDA-Public Use
  Company Number: US-VERTEX PHARMACEUTICALS INC.-2012-025797

PATIENT
  Age: 46 None
  Sex: Male
  Weight: 85 kg

DRUGS (3)
  1. VX-950 (TELAPREVIR) [Suspect]
     Indication: HEPATITIS C
     Dosage: 750 MG, TID
     Route: 048
     Dates: start: 20120924, end: 201212
  2. PEGASYS [Suspect]
     Indication: HEPATITIS C
     Dosage: 90 ?G, QW
     Route: 058
     Dates: start: 20120924
  3. RIBAPAK [Suspect]
     Indication: HEPATITIS C
     Dosage: 600 MG, BID
     Route: 048
     Dates: start: 20120924

REACTIONS (6)
  - Nasopharyngitis [Unknown]
  - Abdominal discomfort [Unknown]
  - Local swelling [Unknown]
  - Anaemia [Unknown]
  - Nausea [Unknown]
  - Rash [Unknown]
